FAERS Safety Report 7405899-2 (Version None)
Quarter: 2011Q2

REPORT INFORMATION
  Report Type: 
  Country: None (occurrence: None)
  Receive Date: 20110411
  Receipt Date: 20110408
  Transmission Date: 20111010
  Serious: Yes (Hospitalization)
  Sender: FDA-Public Use
  Company Number: FR-PFIZER INC-FR-WYE-H07886709

PATIENT
  Age: 67 Year
  Sex: Female
  Weight: 109 kg

DRUGS (15)
  1. CORDARONE [Suspect]
     Dosage: 100 MG, 1X/DAY
     Route: 048
     Dates: end: 20080806
  2. CELLCEPT [Suspect]
     Dosage: 500 MG, 2X/DAY
     Route: 048
     Dates: end: 20080808
  3. PRAVASTATIN SODIUM [Suspect]
     Dosage: 40 MG, 1X/DAY
     Route: 048
     Dates: end: 20080806
  4. ROCEPHIN [Suspect]
     Dosage: 2 G, 1X/DAY
     Route: 042
     Dates: start: 20080716, end: 20080805
  5. ARANESP [Concomitant]
     Dosage: UNK
     Route: 065
     Dates: end: 20080806
  6. OFLOCET [Suspect]
     Dosage: 200 MG, 1X/DAY
     Route: 048
     Dates: start: 20080722, end: 20080805
  7. NEORAL [Concomitant]
     Route: 048
  8. CALCIPARINE [Concomitant]
     Dosage: UNK
     Route: 058
     Dates: start: 20080716
  9. AMLODIPINE BESYLATE [Suspect]
     Dosage: 5 MG, 1X/DAY
     Route: 048
     Dates: end: 20080806
  10. SPECIAFOLDINE [Concomitant]
     Dosage: UNK
     Route: 048
     Dates: end: 20080806
  11. LASIX [Concomitant]
     Dosage: UNK
     Route: 065
     Dates: end: 20080716
  12. FLAGYL [Concomitant]
     Dosage: UNK
     Route: 065
     Dates: start: 20080722, end: 20080805
  13. TENORMIN [Suspect]
     Dosage: NOT PROVIDED
     Route: 048
     Dates: end: 20080806
  14. PREVISCAN [Concomitant]
     Dosage: UNK
     Route: 048
     Dates: end: 20080716
  15. LASIX [Concomitant]
     Dosage: UNK
     Route: 065
     Dates: start: 20080723, end: 20080808

REACTIONS (4)
  - QUADRIPARESIS [None]
  - MUSCULAR WEAKNESS [None]
  - RHABDOMYOLYSIS [None]
  - RENAL FAILURE [None]
